FAERS Safety Report 12580733 (Version 4)
Quarter: 2017Q2

REPORT INFORMATION
  Report Type: Report from Study
  Country: JP (occurrence: JP)
  Receive Date: 20160721
  Receipt Date: 20170524
  Transmission Date: 20170830
  Serious: No
  Sender: FDA-Public Use
  Company Number: JP-ARIAD PHARMACEUTICALS, INC-2016JP006734

PATIENT
  Age: 73 Year
  Sex: Male
  Weight: 75 kg

DRUGS (22)
  1. PONATINIB [Suspect]
     Active Substance: PONATINIB
     Indication: CHRONIC MYELOID LEUKAEMIA
     Dosage: 45 MG, QD
     Route: 048
     Dates: start: 20130213
  2. ALLEGRA [Concomitant]
     Active Substance: FEXOFENADINE HYDROCHLORIDE
     Indication: RASH
  3. ALMETA [Concomitant]
     Active Substance: ALCLOMETASONE DIPROPIONATE
     Indication: SEBORRHOEIC DERMATITIS
     Dosage: QS, PRN
     Route: 061
     Dates: start: 20151007
  4. MUCOSTA TABLETS 100MG [Concomitant]
     Indication: PROPHYLAXIS
  5. BAYASPIRIN [Concomitant]
     Active Substance: ASPIRIN
     Indication: THROMBOSIS PROPHYLAXIS
     Dosage: 100 MG, QD
     Route: 048
     Dates: start: 20141112
  6. HIRUDOID [Concomitant]
     Active Substance: GLYCOSAMINOGLYCANS
     Indication: RASH
     Dosage: QS, PRN
     Route: 061
     Dates: start: 20140123
  7. HIRUDOID [Concomitant]
     Active Substance: GLYCOSAMINOGLYCANS
     Indication: PROPHYLAXIS
  8. FEBURIC [Concomitant]
     Active Substance: FEBUXOSTAT
     Indication: HYPERURICAEMIA
     Dosage: 20 MG, QD
     Route: 048
     Dates: start: 20131218
  9. HIRUDOID [Concomitant]
     Active Substance: GLYCOSAMINOGLYCANS
     Indication: RASH
  10. MUCOSTA [Concomitant]
     Active Substance: REBAMIPIDE
     Indication: GASTROINTESTINAL MUCOSAL DISORDER
     Dosage: UNK
     Dates: start: 20130612, end: 20160615
  11. MUCOSTA TABLETS 100MG [Concomitant]
     Indication: GASTROINTESTINAL MUCOSAL DISORDER
     Dosage: UNK
     Route: 048
     Dates: start: 20130612
  12. PONATINIB [Suspect]
     Active Substance: PONATINIB
     Dosage: 30 MG, QD
     Route: 048
     Dates: end: 20131120
  13. FOIPAN [Concomitant]
     Active Substance: CAMOSTAT MESYLATE
     Indication: LIPASE INCREASED
     Dosage: 600 MG, DAILY DOSE(DIVIDED INTO 3 DOSES)
     Route: 048
     Dates: start: 20130307
  14. OLMETEC [Concomitant]
     Active Substance: OLMESARTAN MEDOXOMIL
     Dosage: UNK
     Route: 048
     Dates: start: 20090217
  15. OLMETEC [Concomitant]
     Active Substance: OLMESARTAN MEDOXOMIL
     Indication: HYPERTENSION
     Dosage: 10 MG, QD
     Route: 048
     Dates: start: 20130313
  16. BEZATOL [Concomitant]
     Active Substance: BEZAFIBRATE
     Indication: HYPERLIPIDAEMIA
     Dosage: 400 MG, DAILY DOSE(DIVIDED INTO 2 DOSES)
     Route: 048
     Dates: start: 20140123
  17. PONATINIB [Suspect]
     Active Substance: PONATINIB
     Dosage: 15 MG, QD
     Route: 048
     Dates: start: 20131121, end: 20160831
  18. MAGLAX [Concomitant]
     Active Substance: MAGNESIUM OXIDE
     Indication: CONSTIPATION
     Dosage: 660 MG, DAILY DOSE(DIVIDED INTO 2 DOSES)
     Route: 048
     Dates: start: 20150114
  19. ELIQUIS [Concomitant]
     Active Substance: APIXABAN
     Indication: THROMBOSIS PROPHYLAXIS
     Dosage: 5 MG, DAILY DOSE(DIVIDED INTO 2 DOSES)
     Route: 048
     Dates: start: 20141126
  20. FOIPAN [Concomitant]
     Active Substance: CAMOSTAT MESYLATE
     Indication: AMYLASE INCREASED
  21. ALLEGRA [Concomitant]
     Active Substance: FEXOFENADINE HYDROCHLORIDE
     Indication: RASH
     Dosage: 120 MG, DAILY DOSE(DIVIDED INTO 2 DOSES)
     Route: 048
     Dates: start: 20130605
  22. ANTEBATE [Concomitant]
     Active Substance: BETAMETHASONE DIPROPIONATE
     Indication: ERYTHEMA
     Dosage: QS, PRN
     Route: 061
     Dates: start: 20140204

REACTIONS (1)
  - Peripheral coldness [Recovered/Resolved]

NARRATIVE: CASE EVENT DATE: 20151124
